FAERS Safety Report 11725978 (Version 1)
Quarter: 2015Q4

REPORT INFORMATION
  Report Type: Spontaneous
  Country: US (occurrence: US)
  Receive Date: 20151110
  Receipt Date: 20151110
  Transmission Date: 20160304
  Serious: No
  Sender: FDA-Public Use
  Company Number: US-ELI_LILLY_AND_COMPANY-US201110003213

PATIENT
  Age: 77 Year
  Sex: Female

DRUGS (1)
  1. FORTEO [Suspect]
     Active Substance: TERIPARATIDE
     Indication: OSTEOPOROSIS
     Dosage: 20 UG, QD
     Route: 065
     Dates: start: 20111006

REACTIONS (8)
  - Nervousness [Unknown]
  - Asthenia [Recovered/Resolved]
  - Nausea [Recovered/Resolved]
  - Mydriasis [Unknown]
  - Heart rate increased [Recovered/Resolved]
  - Asthenia [Unknown]
  - Visual impairment [Unknown]
  - Tremor [Recovered/Resolved]

NARRATIVE: CASE EVENT DATE: 20111006
